FAERS Safety Report 21704883 (Version 2)
Quarter: 2023Q1

REPORT INFORMATION
  Report Type: Spontaneous
  Country: US (occurrence: US)
  Receive Date: 20221209
  Receipt Date: 20230213
  Transmission Date: 20230418
  Serious: No
  Sender: FDA-Public Use
  Company Number: US-SA-SAC20221208000553

PATIENT
  Sex: Male

DRUGS (1)
  1. DUPIXENT [Suspect]
     Active Substance: DUPILUMAB
     Indication: Dermatitis
     Dosage: 300 MG; OTHER
     Route: 058
     Dates: start: 202210

REACTIONS (3)
  - Upper respiratory tract congestion [Unknown]
  - Product use in unapproved indication [Unknown]
  - Product dose omission in error [Unknown]
